FAERS Safety Report 9663193 (Version 3)
Quarter: 2013Q4

REPORT INFORMATION
  Report Type: Spontaneous
  Country: DE (occurrence: DE)
  Receive Date: 20131101
  Receipt Date: 20131115
  Transmission Date: 20140711
  Serious: Yes (Hospitalization)
  Sender: FDA-Public Use
  Company Number: DE-BIOGENIDEC-2013BI065395

PATIENT
  Age: 56 Year
  Sex: Female
  Weight: 80 kg

DRUGS (4)
  1. AVONEX [Suspect]
     Indication: RELAPSING-REMITTING MULTIPLE SCLEROSIS
     Route: 030
     Dates: start: 20091124
  2. GYNOKADIN [Concomitant]
     Indication: HORMONE REPLACEMENT THERAPY
  3. UTROGEST [Concomitant]
     Indication: HORMONE REPLACEMENT THERAPY
  4. IBUPROFEN [Concomitant]
     Indication: PROPHYLAXIS
     Dates: start: 20091124

REACTIONS (1)
  - Ovarian cyst [Recovered/Resolved]
